FAERS Safety Report 17313419 (Version 1)
Quarter: 2020Q1

REPORT INFORMATION
  Report Type: Spontaneous
  Country: IT (occurrence: IT)
  Receive Date: 20200124
  Receipt Date: 20200124
  Transmission Date: 20200409
  Serious: Yes (Death, Hospitalization, Other)
  Sender: FDA-Public Use
  Company Number: IT-CELLTRION INC.-2020IT018091

PATIENT

DRUGS (8)
  1. AZATHIOPRINE. [Suspect]
     Active Substance: AZATHIOPRINE
     Indication: PEMPHIGUS
     Dosage: 1.25 MG/KG, DAILY
     Route: 065
  2. RITUXIMAB (UNKNOWN) [Suspect]
     Active Substance: RITUXIMAB
     Indication: PEMPHIGUS
     Dosage: 375 MG/M2, QW; ONE CYCLE CONSISTING OF ONE INFUSION OF 375 MG/M2/EVERY WEEK FOR 4 WEEKS
     Route: 042
  3. RITUXIMAB (UNKNOWN) [Suspect]
     Active Substance: RITUXIMAB
     Indication: IMMUNOSUPPRESSANT DRUG THERAPY
  4. AZATHIOPRINE. [Suspect]
     Active Substance: AZATHIOPRINE
     Indication: IMMUNOSUPPRESSANT DRUG THERAPY
     Dosage: 1.25 MG/KG, DAILY
     Route: 065
  5. DELTACORTENE [Suspect]
     Active Substance: PREDNISONE
     Indication: PEMPHIGUS
     Dosage: 1 MG/KG, DAILY
     Route: 048
  6. DELTACORTENE [Suspect]
     Active Substance: PREDNISONE
     Indication: IMMUNOSUPPRESSANT DRUG THERAPY
     Dosage: 1 MG/KG, DAILY
     Route: 048
  7. IMMUNOGLOBULINS (IMMUNOGLOBULIN HUMAN NORMAL) [Suspect]
     Active Substance: HUMAN IMMUNOGLOBULIN G
     Indication: IMMUNOSUPPRESSANT DRUG THERAPY
     Dosage: 400 MG/KG, UNK
     Route: 042
  8. DELTACORTENE [Suspect]
     Active Substance: PREDNISONE
     Indication: PEMPHIGUS
     Dosage: TAPERED DOSE
     Route: 048

REACTIONS (24)
  - Rebound effect [Unknown]
  - Skin mass [Unknown]
  - Asthenia [Unknown]
  - Skin lesion [Unknown]
  - Off label use [Unknown]
  - Therapy partial responder [Unknown]
  - Condition aggravated [Unknown]
  - Human herpes virus 8 test positive [Unknown]
  - Lip erosion [Unknown]
  - Drug ineffective for unapproved indication [Recovering/Resolving]
  - Dysphagia [Unknown]
  - Intentional product use issue [Fatal]
  - Disease progression [Fatal]
  - Weight decreased [Unknown]
  - Immunosuppression [Recovering/Resolving]
  - Pemphigus [Fatal]
  - Septic shock [Fatal]
  - Kaposi^s sarcoma [Fatal]
  - Pneumonia acinetobacter [Fatal]
  - Blister [Unknown]
  - Oral disorder [Unknown]
  - Lip ulceration [Unknown]
  - Skin erosion [Unknown]
  - Mouth ulceration [Unknown]
